FAERS Safety Report 7425213-6 (Version None)
Quarter: 2011Q2

REPORT INFORMATION
  Report Type: 
  Country: None (occurrence: None)
  Receive Date: 20110420
  Receipt Date: 20110408
  Transmission Date: 20111010
  Serious: Yes (Other)
  Sender: FDA-Public Use
  Company Number: TH-RANBAXY-2011R3-43129

PATIENT

DRUGS (3)
  1. CIPROFLOXACIN [Suspect]
     Indication: DIARRHOEA
     Dosage: 1 G, QD
     Route: 048
     Dates: start: 20110221, end: 20110225
  2. METOCLOPRAMIDE [Concomitant]
     Indication: PRODUCT USED FOR UNKNOWN INDICATION
     Dosage: 10MG, UNK
     Route: 065
  3. ORS POWDER [Concomitant]
     Indication: PRODUCT USED FOR UNKNOWN INDICATION
     Dosage: UNK
     Route: 065

REACTIONS (1)
  - TENDON PAIN [None]
